FAERS Safety Report 5252461-6 (Version None)
Quarter: 2007Q1

REPORT INFORMATION
  Report Type: 
  Country: None (occurrence: None)
  Receive Date: 20070301
  Receipt Date: 20070222
  Transmission Date: 20070707
  Serious: Yes (Other)
  Sender: FDA-Public Use
  Company Number: FR-JNJFOC-20070202215

PATIENT
  Age: 41 Year
  Sex: Female
  Weight: 120 kg

DRUGS (10)
  1. REMICADE [Suspect]
     Route: 042
  2. REMICADE [Suspect]
     Route: 042
  3. REMICADE [Suspect]
     Route: 042
  4. REMICADE [Suspect]
     Route: 042
  5. REMICADE [Suspect]
     Indication: ANKYLOSING SPONDYLITIS
     Route: 042
  6. RIFINAH. [Suspect]
     Indication: PROPHYLAXIS
     Route: 048
  7. LEVOTHYROXINE SODIUM [Concomitant]
     Indication: HYPOTHYROIDISM
     Route: 048
  8. HYPERIUM [Concomitant]
     Indication: HYPERTENSION
     Route: 048
  9. ALDACTAZINE [Concomitant]
     Indication: HYPERTENSION
     Route: 048
  10. KLIPAL [Concomitant]
     Indication: ANKYLOSING SPONDYLITIS
     Dosage: 2 - 4 TABLETS PER DAY
     Route: 048

REACTIONS (4)
  - AUTOIMMUNE HEPATITIS [None]
  - CYTOLYTIC HEPATITIS [None]
  - HEPATITIS [None]
  - HEPATITIS CHRONIC ACTIVE [None]
